FAERS Safety Report 24956996 (Version 2)
Quarter: 2025Q2

REPORT INFORMATION
  Report Type: Spontaneous
  Country: CH (occurrence: CH)
  Receive Date: 20250211
  Receipt Date: 20250523
  Transmission Date: 20250716
  Serious: Yes (Life-Threatening, Disabling, Other)
  Sender: PFIZER
  Company Number: None

PATIENT
  Age: 30 Year
  Sex: Female
  Weight: 45 kg

DRUGS (7)
  1. PANTOZOL [Suspect]
     Active Substance: PANTOPRAZOLE SODIUM
     Indication: Helicobacter infection
     Dosage: 40 MG, 2X/DAY (Q12H)
     Route: 048
     Dates: start: 20241024, end: 20241102
  2. METRONIDAZOLE [Suspect]
     Active Substance: METRONIDAZOLE
     Indication: Helicobacter infection
     Dosage: 500 MG, 3X/DAY (Q8HR)
     Route: 048
     Dates: start: 20241029, end: 20241102
  3. LEVOFLOXACIN [Suspect]
     Active Substance: LEVOFLOXACIN
     Indication: Helicobacter infection
     Dosage: 500 MG, 1X/DAY (QD)
     Route: 048
     Dates: start: 20241029, end: 20241102
  4. AMOXICILLIN [Suspect]
     Active Substance: AMOXICILLIN
     Dosage: 1 G, 2X/DAY (Q12H)
     Route: 048
     Dates: start: 20241024, end: 20241028
  5. XANAX [Concomitant]
     Active Substance: ALPRAZOLAM
     Dosage: 1 DF, 1X/DAY (QD)
     Route: 048
  6. DIENOGEST\ETHINYL ESTRADIOL [Concomitant]
     Active Substance: DIENOGEST\ETHINYL ESTRADIOL
     Dosage: 1 DF, 1X/DAY (QD)
     Route: 048
  7. TRAZODONE HYDROCHLORIDE [Concomitant]
     Active Substance: TRAZODONE HYDROCHLORIDE
     Dosage: 1 DF, 1X/DAY (QD)
     Route: 048

REACTIONS (9)
  - Neuropathy peripheral [Not Recovered/Not Resolved]
  - Nervous system disorder [Not Recovered/Not Resolved]
  - Confusional state [Recovered/Resolved]
  - Suicidal ideation [Recovered/Resolved]
  - Raynaud^s phenomenon [Not Recovered/Not Resolved]
  - Chest pain [Not Recovered/Not Resolved]
  - Fatigue [Not Recovered/Not Resolved]
  - Dyspnoea [Not Recovered/Not Resolved]
  - Off label use [Unknown]

NARRATIVE: CASE EVENT DATE: 20241028
